FAERS Safety Report 21719354 (Version 2)
Quarter: 2022Q4

REPORT INFORMATION
  Report Type: Spontaneous
  Country: US (occurrence: US)
  Receive Date: 20221213
  Receipt Date: 20221215
  Transmission Date: 20230113
  Serious: No
  Sender: FDA-Public Use
  Company Number: US-BIOVITRUM-2022US12220

PATIENT
  Sex: Male
  Weight: 8 kg

DRUGS (12)
  1. SYNAGIS [Suspect]
     Active Substance: PALIVIZUMAB
     Indication: Pulmonary arterial hypertension
     Dosage: 50 MG  SDV/INJ PF 0.5 ML 1^S, 100 MG  SDV/INJ PF 1 ML 1^S
  2. BOSENTAN [Concomitant]
     Active Substance: BOSENTAN
  3. IRONUP [Concomitant]
     Dosage: 15 MG/0.5ML DROPS.
  4. VITAMIN D-400 [Concomitant]
  5. ALDACTONE [Concomitant]
     Active Substance: SPIRONOLACTONE
  6. DIURIL [Concomitant]
     Active Substance: CHLOROTHIAZIDE
     Dosage: 250 MG/5ML ORAL SUSPENSION
  7. PREVACID [Concomitant]
     Active Substance: LANSOPRAZOLE
     Dosage: RAP DR
  8. SYNAGIS [Suspect]
     Active Substance: PALIVIZUMAB
     Indication: Low birth weight baby
  9. SYNAGIS [Suspect]
     Active Substance: PALIVIZUMAB
     Indication: Lung disorder
  10. SYNAGIS [Suspect]
     Active Substance: PALIVIZUMAB
     Indication: Premature baby
  11. SYNAGIS [Suspect]
     Active Substance: PALIVIZUMAB
     Indication: Dysphagia
  12. SILDENAFIL CITRATE [Concomitant]
     Active Substance: SILDENAFIL CITRATE

REACTIONS (4)
  - Nasopharyngitis [Unknown]
  - Food allergy [Unknown]
  - Pyrexia [Unknown]
  - Off label use [Unknown]
